FAERS Safety Report 8547918-6 (Version None)
Quarter: 2012Q3

REPORT INFORMATION
  Report Type: 
  Country: None (occurrence: None)
  Receive Date: 20120728
  Receipt Date: 20120718
  Transmission Date: 20120928
  Serious: No
  Sender: FDA-Public Use
  Company Number: US-009507513-1207USA008460

PATIENT

DRUGS (2)
  1. SAPHRIS [Suspect]
  2. DEPAKOTE [Concomitant]

REACTIONS (1)
  - PARKINSONIAN REST TREMOR [None]
